FAERS Safety Report 5777603-5 (Version None)
Quarter: 2008Q2

REPORT INFORMATION
  Report Type: 
  Country: None (occurrence: None)
  Receive Date: 20080618
  Receipt Date: 20080606
  Transmission Date: 20081010
  Serious: Yes (Other)
  Sender: FDA-Public Use
  Company Number: DE-PFIZER INC-2008005782

PATIENT
  Sex: Female

DRUGS (2)
  1. LYRICA [Suspect]
     Indication: PANIC DISORDER
     Route: 048
  2. LYRICA [Suspect]
     Indication: ANXIETY

REACTIONS (2)
  - EYE SWELLING [None]
  - RASH PRURITIC [None]
